FAERS Safety Report 7709321-8 (Version None)
Quarter: 2011Q3

REPORT INFORMATION
  Report Type: 
  Country: None (occurrence: None)
  Receive Date: 20110825
  Receipt Date: 20110818
  Transmission Date: 20111222
  Serious: Yes (Life-Threatening, Other)
  Sender: FDA-Public Use
  Company Number: US-PFIZER INC-2005151281

PATIENT
  Sex: Female

DRUGS (13)
  1. SEROQUEL [Suspect]
  2. TYLENOL W/ CODEINE NO. 3 [Suspect]
  3. ROBAXIN [Suspect]
  4. NEURONTIN [Suspect]
     Dosage: 60 MG, UNK
     Dates: start: 20020509
  5. OXYCONTIN [Suspect]
  6. NEURONTIN [Suspect]
     Dosage: 600 MG, 1X/DAY
     Dates: start: 20010815, end: 20011021
  7. NEURONTIN [Suspect]
     Dosage: 300 MG, 1X/DAY
     Dates: start: 20010730
  8. TEMAZEPAM [Suspect]
  9. VICODIN [Suspect]
  10. CLONAZEPAM [Suspect]
  11. CHLORAL HYDRATE [Suspect]
  12. EFFEXOR XR [Suspect]
  13. PAXIL [Suspect]

REACTIONS (12)
  - INTENTIONAL OVERDOSE [None]
  - RENAL FAILURE [None]
  - SUICIDE ATTEMPT [None]
  - DRUG INEFFECTIVE [None]
  - CEREBRAL INFARCTION [None]
  - CYANOSIS [None]
  - DYSPNOEA [None]
  - RESPIRATORY FAILURE [None]
  - HYPOXIC-ISCHAEMIC ENCEPHALOPATHY [None]
  - HEPATIC FUNCTION ABNORMAL [None]
  - COMA [None]
  - RHABDOMYOLYSIS [None]
